FAERS Safety Report 5870484-0 (Version None)
Quarter: 2008Q3

REPORT INFORMATION
  Report Type: 
  Country: None (occurrence: None)
  Receive Date: 20080904
  Receipt Date: 20080722
  Transmission Date: 20090109
  Serious: Yes (Other)
  Sender: FDA-Public Use
  Company Number: US-BRISTOL-MYERS SQUIBB COMPANY-14243927

PATIENT
  Age: 63 Year
  Sex: Male
  Weight: 119 kg

DRUGS (4)
  1. DEFINITY [Suspect]
     Indication: STRESS ECHOCARDIOGRAM
     Dosage: 1 DOSAGE FORM = 2.5CC TWICE OF DILUTED DEFINITY ( 2.55CC WITH 7.5CC NORMAL SALINE). TOTAL - 3CC
     Route: 042
     Dates: start: 20080627
  2. KEFLEX [Concomitant]
  3. HYZAAR [Concomitant]
  4. ASACOL [Concomitant]

REACTIONS (6)
  - DYSPHAGIA [None]
  - ERYTHEMA [None]
  - FEELING ABNORMAL [None]
  - HYPERSENSITIVITY [None]
  - OCULAR HYPERAEMIA [None]
  - URTICARIA [None]
